FAERS Safety Report 4276741-6 (Version None)
Quarter: 2004Q1

REPORT INFORMATION
  Report Type: 
  Country: None (occurrence: None)
  Receive Date: 20040120
  Receipt Date: 20000929
  Transmission Date: 20041129
  Serious: No
  Sender: FDA-Public Use
  Company Number: 2000AH00287

PATIENT
  Age: 42 Year
  Sex: Female

DRUGS (2)
  1. MOPRAL [Suspect]
     Indication: SURGERY
     Dosage: 20 MG DAILY PO
     Route: 048
     Dates: start: 19990807, end: 19991210
  2. HYDROCORTISONE [Concomitant]

REACTIONS (1)
  - COUGH [None]
